FAERS Safety Report 7357256-5 (Version None)
Quarter: 2011Q1

REPORT INFORMATION
  Report Type: 
  Country: None (occurrence: None)
  Receive Date: 20110317
  Receipt Date: 20110307
  Transmission Date: 20110831
  Serious: No
  Sender: FDA-Public Use
  Company Number: US-PFIZER INC-US-WYE-H12571009

PATIENT
  Sex: Male
  Weight: 83.9 kg

DRUGS (5)
  1. TRAZODONE HCL [Suspect]
     Indication: INSOMNIA
     Dosage: 50 MG, UNK
     Route: 048
     Dates: start: 20090101, end: 20090101
  2. TRAZODONE HCL [Suspect]
     Dosage: 100 MG, UNK
     Route: 048
     Dates: start: 20090101
  3. PRISTIQ [Suspect]
     Indication: DEPRESSION
     Dosage: 50 MG, 1X/DAY
     Route: 048
     Dates: start: 20090401
  4. KLONOPIN [Concomitant]
  5. CLONAZEPAM [Concomitant]
     Indication: ANXIETY
     Dosage: 2 MG, 1X/DAY

REACTIONS (4)
  - INSOMNIA [None]
  - PAIN IN EXTREMITY [None]
  - CONDITION AGGRAVATED [None]
  - DRUG INEFFECTIVE [None]
